FAERS Safety Report 21458980 (Version 1)
Quarter: 2022Q4

REPORT INFORMATION
  Report Type: Spontaneous
  Country: US (occurrence: None)
  Receive Date: 20221013
  Receipt Date: 20221013
  Transmission Date: 20230113
  Serious: Yes (Hospitalization)
  Sender: FDA-Public Use
  Company Number: None

PATIENT
  Age: 54 Year
  Sex: Female

DRUGS (15)
  1. AMBRISENTAN [Suspect]
     Active Substance: AMBRISENTAN
     Indication: Lung hyperinflation
     Dosage: FREQUENCY : DAILY;?
     Route: 048
     Dates: start: 20190117
  2. TADALAFIL [Concomitant]
     Active Substance: TADALAFIL
  3. WIXELA [Concomitant]
  4. LISINOPRIL [Concomitant]
  5. FUROSEMIDE [Concomitant]
  6. DIVALPROEX [Concomitant]
  7. QUETIAPINE [Concomitant]
  8. PANTOPRAZOLE [Concomitant]
  9. FLUOXETINE [Concomitant]
  10. ALBUTEROL HFA [Concomitant]
  11. ATORVASTATIN [Concomitant]
  12. OXYBUTYNIN [Concomitant]
  13. ASCORBIC ACID\IRON [Concomitant]
     Active Substance: ASCORBIC ACID\IRON
  14. VITAMINS [Concomitant]
     Active Substance: VITAMINS
  15. ASPIRIN [Concomitant]
     Active Substance: ASPIRIN

REACTIONS (5)
  - Dyspnoea [None]
  - Dyspnoea exertional [None]
  - Acute respiratory failure [None]
  - Chronic obstructive pulmonary disease [None]
  - Asthma [None]

NARRATIVE: CASE EVENT DATE: 20220915
